FAERS Safety Report 16829968 (Version 1)
Quarter: 2019Q3

REPORT INFORMATION
  Report Type: Spontaneous
  Country: US (occurrence: US)
  Receive Date: 20190919
  Receipt Date: 20190919
  Transmission Date: 20191005
  Serious: No
  Sender: FDA-Public Use
  Company Number: US-TARO-2019TAR00013

PATIENT
  Age: 2 Year
  Sex: Female

DRUGS (2)
  1. LORATADINE ORAL SOLUTION USP 5 MG/5 ML [Suspect]
     Active Substance: LORATADINE
     Dosage: 5 MG, 1X/DAY
  2. LORATADINE ORAL SOLUTION USP 5 MG/5 ML [Suspect]
     Active Substance: LORATADINE
     Dosage: 5 MG, TWICE
     Dates: start: 20190106, end: 20190107

REACTIONS (2)
  - Hypersomnia [Recovered/Resolved]
  - Accidental overdose [Recovered/Resolved]

NARRATIVE: CASE EVENT DATE: 20190106
